FAERS Safety Report 23664917 (Version 1)
Quarter: 2024Q1

REPORT INFORMATION
  Report Type: Spontaneous
  Country: US (occurrence: US)
  Receive Date: 20240322
  Receipt Date: 20240322
  Transmission Date: 20240410
  Serious: No
  Sender: FDA-Public Use
  Company Number: US-PFIZER INC-PV202400038569

PATIENT
  Age: 70 Year
  Sex: Male

DRUGS (2)
  1. TESSALON [Suspect]
     Active Substance: BENZONATATE
     Indication: Cough
     Dosage: UNK
  2. TYVASO [Concomitant]
     Active Substance: TREPROSTINIL
     Indication: Pulmonary arterial hypertension
     Dosage: 60 UG, 4X/DAY
     Route: 055
     Dates: start: 202309

REACTIONS (1)
  - Drug ineffective [Unknown]
